FAERS Safety Report 17593756 (Version 1)
Quarter: 2020Q1

REPORT INFORMATION
  Report Type: Spontaneous
  Country: DE (occurrence: DE)
  Receive Date: 20200327
  Receipt Date: 20200327
  Transmission Date: 20200409
  Serious: Yes (Hospitalization)
  Sender: FDA-Public Use
  Company Number: DE-MYLANLABS-2020M1032171

PATIENT
  Age: 62 Year
  Sex: Male

DRUGS (8)
  1. MAALOXAN                           /00082501/ [Concomitant]
     Dosage: UNK UNK, QD (230|400 MG, 1-0-0-0)
  2. BISACODYL. [Concomitant]
     Active Substance: BISACODYL
     Dosage: 10 MG, BEDARF, SUPPOSITORIEN
  3. TORASEMIDE [Suspect]
     Active Substance: TORSEMIDE
     Indication: PRODUCT USED FOR UNKNOWN INDICATION
     Dosage: 10 MILLIGRAM, QD (1-0-0-0)
  4. METOPROLOL. [Concomitant]
     Active Substance: METOPROLOL
     Dosage: 23.75 MILLIGRAM (0.5-0-0.5-0)
  5. PANTOPRAZOL                        /01263201/ [Concomitant]
     Active Substance: PANTOPRAZOLE
     Dosage: 40 MG, 1-0-0-0, TABLETTEN
  6. RIVAROXABAN [Concomitant]
     Active Substance: RIVAROXABAN
     Dosage: 20 MILLIGRAM (0-1-0-0)
  7. OXYCODON [Suspect]
     Active Substance: OXYCODONE
     Indication: PRODUCT USED FOR UNKNOWN INDICATION
     Dosage: 10 MILLIGRAM, BID (1-0-1-0)
  8. METAMIZOL                          /06276701/ [Concomitant]
     Active Substance: METAMIZOLE
     Dosage: 500 MILLIGRAM, (1-1-1-1)

REACTIONS (2)
  - Abdominal pain upper [Recovered/Resolved]
  - Renal impairment [Recovered/Resolved]
